FAERS Safety Report 8716419 (Version 2)
Quarter: 2013Q4

REPORT INFORMATION
  Report Type: Spontaneous
  Country: US (occurrence: US)
  Receive Date: 20120810
  Receipt Date: 20131101
  Transmission Date: 20140711
  Serious: No
  Sender: FDA-Public Use
  Company Number: US-009507513-1207USA013132

PATIENT
  Sex: Female

DRUGS (3)
  1. FOSAMAX [Suspect]
     Route: 048
  2. BONIVA [Concomitant]
  3. ACTONEL [Concomitant]

REACTIONS (3)
  - Chest pain [Unknown]
  - Myalgia [Unknown]
  - Arthralgia [Unknown]
